FAERS Safety Report 16202187 (Version 1)
Quarter: 2019Q2

REPORT INFORMATION
  Report Type: Spontaneous
  Country: IT (occurrence: IT)
  Receive Date: 20190416
  Receipt Date: 20190416
  Transmission Date: 20190711
  Serious: Yes (Death, Hospitalization)
  Sender: FDA-Public Use
  Company Number: IT-BAYER-2019-074874

PATIENT
  Sex: Female

DRUGS (1)
  1. ADEMPAS [Suspect]
     Active Substance: RIOCIGUAT
     Indication: PULMONARY HYPERTENSION

REACTIONS (3)
  - Dyspnoea [Fatal]
  - Pneumonitis [Fatal]
  - Pyrexia [Fatal]

NARRATIVE: CASE EVENT DATE: 20190408
